FAERS Safety Report 9859626 (Version 2)
Quarter: 2014Q1

REPORT INFORMATION
  Report Type: Spontaneous
  Country: FR (occurrence: FR)
  Receive Date: 20140131
  Receipt Date: 20140131
  Transmission Date: 20141002
  Serious: Yes (Hospitalization)
  Sender: FDA-Public Use
  Company Number: FR-ARROW-2012-17886

PATIENT
  Age: 64 Year
  Sex: Male

DRUGS (7)
  1. CIPROFLOXACINE ARROW [Suspect]
     Indication: PROSTATITIS
     Dosage: 500 MG, BID
     Route: 048
     Dates: start: 20120728, end: 20120730
  2. COTRIMOXAZOLE [Suspect]
     Indication: PROSTATITIS
     Dosage: 1 DF, BID
     Route: 048
     Dates: start: 20120706, end: 20120727
  3. COTRIMOXAZOLE [Suspect]
     Dosage: 1 DF, BID
     Route: 048
     Dates: start: 20120730, end: 20120802
  4. DOMPERIDONE CRISTERS [Suspect]
     Indication: PRODUCT USED FOR UNKNOWN INDICATION
     Dosage: 20 MG, TID
     Route: 048
     Dates: start: 20120728, end: 201208
  5. FURADANTINE [Suspect]
     Indication: PRODUCT USED FOR UNKNOWN INDICATION
     Dosage: 50 MG, TID
     Route: 048
     Dates: start: 20120730, end: 20120802
  6. CELESTAMINE /00252801/ [Suspect]
     Indication: PRODUCT USED FOR UNKNOWN INDICATION
     Dosage: 120 MG
     Route: 048
     Dates: start: 20120731, end: 201208
  7. PARIET [Suspect]
     Indication: PRODUCT USED FOR UNKNOWN INDICATION
     Dosage: 20 MG, DAILY
     Route: 048
     Dates: start: 20120731, end: 201208

REACTIONS (1)
  - Hepatitis cholestatic [Recovering/Resolving]
